FAERS Safety Report 8637518 (Version 2)
Quarter: 2013Q4

REPORT INFORMATION
  Report Type: Spontaneous
  Country: US (occurrence: US)
  Receive Date: 20120627
  Receipt Date: 20131015
  Transmission Date: 20140711
  Serious: Yes (Hospitalization)
  Sender: FDA-Public Use
  Company Number: US-US-EMD SERONO, INC.-7142128

PATIENT
  Age: 68 Year
  Sex: Male

DRUGS (2)
  1. REBIF [Suspect]
     Indication: MULTIPLE SCLEROSIS
     Route: 058
     Dates: start: 20030627
  2. REBIF [Suspect]
     Route: 058
     Dates: start: 20120214

REACTIONS (5)
  - Intervertebral disc protrusion [Unknown]
  - Injection site erythema [Unknown]
  - Injection site mass [Unknown]
  - Influenza like illness [Unknown]
  - Injection site pruritus [Unknown]
